FAERS Safety Report 4839295-9 (Version None)
Quarter: 2005Q4

REPORT INFORMATION
  Report Type: 
  Country: None (occurrence: None)
  Receive Date: 20051129
  Receipt Date: 20041203
  Transmission Date: 20060501
  Serious: No
  Sender: FDA-Public Use
  Company Number: US-GLAXOSMITHKLINE-A0536046A

PATIENT
  Age: 28 Year
  Sex: Female

DRUGS (2)
  1. WELLBUTRIN SR [Suspect]
     Route: 048
     Dates: start: 20041130, end: 20041203
  2. BACTRIM [Concomitant]

REACTIONS (5)
  - CRYING [None]
  - DIZZINESS [None]
  - PANIC ATTACK [None]
  - TREMOR [None]
  - TUNNEL VISION [None]
